FAERS Safety Report 9787940 (Version 1)
Quarter: 2013Q4

REPORT INFORMATION
  Report Type: Spontaneous
  Country: US (occurrence: None)
  Receive Date: 20131227
  Receipt Date: 20131227
  Transmission Date: 20140711
  Serious: Yes (Other)
  Sender: FDA-Public Use
  Company Number: None

PATIENT
  Age: 28 Month
  Sex: Male
  Weight: 12.25 kg

DRUGS (2)
  1. TAMIFLU [Suspect]
     Indication: INFLUENZA
     Route: 048
     Dates: start: 20131219, end: 20131223
  2. TAMIFLU [Concomitant]

REACTIONS (3)
  - Abnormal behaviour [None]
  - Psychotic disorder [None]
  - Head banging [None]
